FAERS Safety Report 21130886 (Version 2)
Quarter: 2022Q3

REPORT INFORMATION
  Report Type: Spontaneous
  Country: JP (occurrence: JP)
  Receive Date: 20220726
  Receipt Date: 20220803
  Transmission Date: 20221027
  Serious: Yes (Other)
  Sender: FDA-Public Use
  Company Number: JP-NOVARTISPH-NVSJ2022JP090772

PATIENT
  Age: 83 Year
  Sex: Male
  Weight: 59 kg

DRUGS (9)
  1. ENTRESTO [Suspect]
     Active Substance: SACUBITRIL\VALSARTAN
     Indication: Hypertension
     Dosage: 100 MG
     Route: 048
     Dates: start: 20220327, end: 20220515
  2. NESINA [Concomitant]
     Active Substance: ALOGLIPTIN BENZOATE
     Indication: Type 2 diabetes mellitus
     Dosage: 12.5 MG
     Route: 048
     Dates: start: 20141208
  3. CANAGLIFLOZIN [Concomitant]
     Active Substance: CANAGLIFLOZIN
     Indication: Type 2 diabetes mellitus
     Dosage: 100 MG
     Route: 048
     Dates: start: 20200318, end: 20220515
  4. KREMEZIN [Concomitant]
     Active Substance: ACTIVATED CHARCOAL
     Indication: Chronic kidney disease
     Dosage: 2000 MG, BID
     Route: 048
     Dates: start: 20210528
  5. CILOSTAZOL [Concomitant]
     Active Substance: CILOSTAZOL
     Indication: Cerebral infarction
     Dosage: 100 MG, BID
     Route: 048
     Dates: start: 20211227
  6. SODIUM ZIRCONIUM CYCLOSILICATE [Concomitant]
     Active Substance: SODIUM ZIRCONIUM CYCLOSILICATE
     Indication: Hyperkalaemia
     Dosage: 5 G, BID
     Route: 048
     Dates: start: 20210528, end: 20220519
  7. AZOSEMIDE [Concomitant]
     Active Substance: AZOSEMIDE
     Indication: Polyuria
     Dosage: 30 MG, QD
     Route: 048
     Dates: start: 20220226
  8. AMLODIPINE BESYLATE [Concomitant]
     Active Substance: AMLODIPINE BESYLATE
     Indication: Hypertension
     Dosage: 5 MG, QD
     Route: 048
     Dates: start: 20190824
  9. LEVOTHYROXINE SODIUM [Concomitant]
     Active Substance: LEVOTHYROXINE SODIUM
     Indication: Hypothyroidism
     Dosage: 12.5 MG, QD
     Route: 048
     Dates: start: 20220326

REACTIONS (10)
  - Cardiac failure chronic [Recovering/Resolving]
  - Renal failure [Recovering/Resolving]
  - Renal impairment [Unknown]
  - Hypervolaemia [Recovering/Resolving]
  - Weight increased [Unknown]
  - Oedema [Recovering/Resolving]
  - Renal ischaemia [Recovered/Resolved]
  - Oliguria [Recovered/Resolved]
  - Blood pressure decreased [Recovered/Resolved]
  - Oedema peripheral [Unknown]

NARRATIVE: CASE EVENT DATE: 20220401
